FAERS Safety Report 6454684-7 (Version None)
Quarter: 2009Q4

REPORT INFORMATION
  Report Type: 
  Country: None (occurrence: None)
  Receive Date: 20091118
  Receipt Date: 20080617
  Transmission Date: 20100525
  Serious: Yes (Life-Threatening)
  Sender: FDA-Public Use
  Company Number: FR 2008 0069

PATIENT
  Age: 61 Year
  Sex: Male

DRUGS (1)
  1. HEXABRIX [Suspect]
     Indication: ARTERIOGRAM CORONARY
     Dosage: 30 ML PER DAY, INTRA-VEINOUS
     Route: 042
     Dates: start: 20080513, end: 20080513

REACTIONS (1)
  - ANAPHYLACTIC SHOCK [None]
